FAERS Safety Report 26160049 (Version 1)
Quarter: 2025Q4

REPORT INFORMATION
  Report Type: Spontaneous
  Country: US (occurrence: US)
  Receive Date: 20251216
  Receipt Date: 20251216
  Transmission Date: 20260117
  Serious: No
  Sender: SUNOVION
  Company Number: US-SMPA-2025SPA015832

PATIENT
  Age: 72 Year
  Sex: Female
  Weight: 68.027 kg

DRUGS (11)
  1. GEMTESA [Suspect]
     Active Substance: VIBEGRON
     Indication: Hypertonic bladder
     Dosage: 75 MG
     Route: 048
  2. APRISO [Concomitant]
     Active Substance: MESALAMINE
     Indication: Crohn^s disease
     Dosage: 4 DF, QD, BEEN TAKING IT FOR YEARS
  3. LEVOTHYROXINE SODIUM [Concomitant]
     Active Substance: LEVOTHYROXINE SODIUM
     Dosage: 75 MG
  4. HERBALS\TURMERIC [Concomitant]
     Active Substance: HERBALS\TURMERIC
     Dosage: UNK, BEEN TAKING IT FOR YEARS
  5. Probiotics One Daily Support [Concomitant]
     Dosage: UNK, BEEN TAKING IT FOR YEARS
  6. VITAMIN D [Concomitant]
     Active Substance: VITAMIN D NOS
     Dosage: UNK, BEEN TAKING IT FOR YEARS
  7. GINKGO [Concomitant]
     Active Substance: GINKGO
     Dosage: UNK, BEEN TAKING IT FOR YEARS
  8. BIOTIN [Concomitant]
     Active Substance: BIOTIN
     Dosage: UNK, BEEN TAKING IT FOR YEARS
  9. OMEGA 3 [Concomitant]
     Active Substance: CAPSAICIN
     Dosage: UNK, BEEN TAKING IT FOR YEARS
  10. MAGNESIUM [Concomitant]
     Active Substance: MAGNESIUM
     Dosage: UNK, BEEN TAKING IT FOR YEARS
  11. CALCIUM [Concomitant]
     Active Substance: CALCIUM
     Dosage: UNK, BEEN TAKING IT FOR YEARS

REACTIONS (1)
  - Gingival swelling [Not Recovered/Not Resolved]
